FAERS Safety Report 20164546 (Version 1)
Quarter: 2021Q4

REPORT INFORMATION
  Report Type: Report from Study
  Country: US (occurrence: US)
  Receive Date: 20211209
  Receipt Date: 20211209
  Transmission Date: 20220303
  Serious: No
  Sender: FDA-Public Use
  Company Number: US-NOVARTISTESTPH-NVSC2021US281723

PATIENT
  Sex: Female

DRUGS (1)
  1. KESIMPTA [Suspect]
     Active Substance: OFATUMUMAB
     Indication: Multiple sclerosis
     Dosage: ONE SHOT PER WEEK FOR 3 WEEKS, WITH A WEEK BREAK ; ONCE A MONTH INJECTION THEREAFTER
     Route: 058
     Dates: start: 20211110

REACTIONS (2)
  - Fatigue [Unknown]
  - Pyrexia [Unknown]
